FAERS Safety Report 4864786-4 (Version None)
Quarter: 2005Q4

REPORT INFORMATION
  Report Type: 
  Country: None (occurrence: None)
  Receive Date: 20051222
  Receipt Date: 20050909
  Transmission Date: 20060501
  Serious: Yes (Hospitalization)
  Sender: FDA-Public Use
  Company Number: US-MERCK-0509USA01682

PATIENT
  Age: 71 Year
  Sex: Male
  Weight: 86 kg

DRUGS (15)
  1. VIOXX [Suspect]
     Indication: ARTHRITIS
     Route: 048
     Dates: start: 20000707, end: 20030606
  2. ALLOPURINOL [Concomitant]
     Route: 065
  3. AUGMENTIN [Concomitant]
     Route: 065
  4. GEMFIBROZIL [Concomitant]
     Route: 065
  5. GLUCOPHAGE [Concomitant]
     Indication: DIABETES MELLITUS
     Route: 065
  6. ACETAMINOPHEN AND HYDROCODONE BITARTRATE [Concomitant]
     Route: 065
  7. KEFTAB [Concomitant]
     Route: 065
  8. LEVAQUIN [Concomitant]
     Route: 065
  9. LISINOPRIL [Concomitant]
     Route: 065
  10. NEXIUM [Concomitant]
     Route: 065
  11. HYDROCHLOROTHIAZIDE AND TRIAMTERENE [Concomitant]
     Route: 065
  12. CELEBREX [Concomitant]
     Indication: ARTHRALGIA
     Route: 065
  13. CELEBREX [Concomitant]
     Indication: MYALGIA
     Route: 065
  14. TYLENOL [Concomitant]
     Indication: PAIN
     Route: 065
  15. CEPHALEXIN [Concomitant]
     Route: 065

REACTIONS (31)
  - ANAL FISSURE [None]
  - ANGINA PECTORIS [None]
  - ATRIAL FIBRILLATION [None]
  - BACK PAIN [None]
  - BLOOD CHOLESTEROL INCREASED [None]
  - BLOOD PRESSURE INADEQUATELY CONTROLLED [None]
  - BURSITIS [None]
  - CARDIAC FAILURE CONGESTIVE [None]
  - CARPAL TUNNEL SYNDROME [None]
  - CHEST PAIN [None]
  - COLONIC POLYP [None]
  - CORONARY ARTERY DISEASE [None]
  - CORONARY ARTERY STENOSIS [None]
  - DIZZINESS [None]
  - FALL [None]
  - FOOT OPERATION [None]
  - GASTRIC ULCER [None]
  - HAEMATOCHEZIA [None]
  - HAEMATOMA [None]
  - HIATUS HERNIA [None]
  - HYPOTENSION [None]
  - INTERVERTEBRAL DISC DISORDER [None]
  - MUSCULOSKELETAL DISORDER [None]
  - MYOCARDIAL INFARCTION [None]
  - NAUSEA [None]
  - OSTEOARTHRITIS [None]
  - ROTATOR CUFF SYNDROME [None]
  - SINUS DISORDER [None]
  - SKIN CANCER [None]
  - STASIS DERMATITIS [None]
  - ULCER [None]
